FAERS Safety Report 18296732 (Version 2)
Quarter: 2020Q3

REPORT INFORMATION
  Report Type: Spontaneous
  Country: DE (occurrence: DE)
  Receive Date: 20200922
  Receipt Date: 20200929
  Transmission Date: 20201103
  Serious: Yes (Hospitalization, Other)
  Sender: FDA-Public Use
  Company Number: DE-PFIZER INC-2020362098

PATIENT
  Age: 64 Year
  Sex: Female

DRUGS (13)
  1. METAMIZOLE [Concomitant]
     Active Substance: METAMIZOLE
     Dosage: 500 MG, 4X/DAY, 1?1?1?1
     Route: 048
  2. INSULIN HUMAN [Concomitant]
     Active Substance: INSULIN HUMAN
     Dosage: UNK IU, ACCORDING TO SCHEME
  3. ATORVASTATIN [Concomitant]
     Active Substance: ATORVASTATIN
     Dosage: 60 MG, 1X/DAY, 0?0?1?0
     Route: 048
  4. TIOTROPIUM BROMIDE [Concomitant]
     Active Substance: TIOTROPIUM BROMIDE
     Dosage: 18 UG, 1X/DAY, 1?0?0?0
     Route: 055
  5. FLUTICASONE + SALMETEROL [Concomitant]
     Active Substance: FLUTICASONE FUROATE\SALMETEROL XINAFOATE
     Dosage: 500UG/50UG 2X / DAY, 1?0?1?0, RESP. AEROSOL
     Route: 055
  6. MAGALDRAT [MAGALDRATE] [Concomitant]
     Dosage: 1600 MG, 1X/DAY,0?0?1?0 (SYRUP)
     Route: 048
  7. INSULIN GLARGINE [Concomitant]
     Active Substance: INSULIN GLARGINE
     Dosage: 24 IU, 1X /DAY, 0?1?0?0, VIALS
     Route: 058
  8. ACETYLSALICYLIC ACID [Concomitant]
     Active Substance: ASPIRIN
     Dosage: 100 MG, 1X/DAY, 0?1?0?0
     Route: 048
  9. FOLIC ACID. [Concomitant]
     Active Substance: FOLIC ACID
     Dosage: 5 MG, WEEKLY, ON WEDNESDAYS
     Route: 048
  10. METHOTREXATE SODIUM. [Suspect]
     Active Substance: METHOTREXATE SODIUM
     Dosage: 10 MG, WEEKLY, EVERY TUESDAY
     Route: 048
  11. ALLOPURINOL. [Concomitant]
     Active Substance: ALLOPURINOL
     Dosage: 150MG DAILY, (0.5?0?0?0)
     Route: 048
  12. RAMIPRIL. [Concomitant]
     Active Substance: RAMIPRIL
     Dosage: 2.5 MG, 1X/DAY, 1?0?0?0
     Route: 048
  13. METFORMIN/SITAGLIPTIN [Concomitant]
     Active Substance: METFORMIN\SITAGLIPTIN
     Dosage: 50MG/1000MG 2X/DAY, 1?0?1?0
     Route: 048

REACTIONS (11)
  - Weight decreased [Unknown]
  - Duodenal ulcer [Unknown]
  - Vomiting [Unknown]
  - Abdominal pain upper [Unknown]
  - General physical health deterioration [Unknown]
  - Hepatic function abnormal [Unknown]
  - Gastritis erosive [Unknown]
  - Product prescribing error [Unknown]
  - Nausea [Unknown]
  - Anaemia macrocytic [Unknown]
  - Abdominal pain [Unknown]
